FAERS Safety Report 14478551 (Version 5)
Quarter: 2018Q2

REPORT INFORMATION
  Report Type: Report from Study
  Country: DE (occurrence: DE)
  Receive Date: 20180202
  Receipt Date: 20180423
  Transmission Date: 20180711
  Serious: No
  Sender: FDA-Public Use
  Company Number: DE-UCBSA-2018003746

PATIENT
  Age: 28 Year
  Sex: Male

DRUGS (1)
  1. BRIVARACETAM [Suspect]
     Active Substance: BRIVARACETAM
     Indication: PRODUCT USED FOR UNKNOWN INDICATION
     Dosage: UNK
     Dates: start: 20160513

REACTIONS (2)
  - Drug ineffective [Unknown]
  - Myoclonus [Unknown]

NARRATIVE: CASE EVENT DATE: 20160513
